FAERS Safety Report 22068937 (Version 1)
Quarter: 2023Q1

REPORT INFORMATION
  Report Type: Spontaneous
  Country: US (occurrence: None)
  Receive Date: 20230306
  Receipt Date: 20230306
  Transmission Date: 20230418
  Serious: Yes (Life-Threatening)
  Sender: FDA-Public Use
  Company Number: None

PATIENT
  Age: 77 Year
  Sex: Female
  Weight: 63 kg

DRUGS (1)
  1. KADCYLA [Suspect]
     Active Substance: ADO-TRASTUZUMAB EMTANSINE
     Indication: Breast cancer
     Dates: start: 20221006, end: 20230228

REACTIONS (6)
  - Cough [None]
  - Productive cough [None]
  - Throat tightness [None]
  - Dyspnoea [None]
  - Dyspnoea exertional [None]
  - Drug intolerance [None]

NARRATIVE: CASE EVENT DATE: 20221108
